FAERS Safety Report 5873079-8 (Version None)
Quarter: 2008Q3

REPORT INFORMATION
  Report Type: 
  Country: None (occurrence: None)
  Receive Date: 20080827
  Receipt Date: 20080819
  Transmission Date: 20090109
  Serious: Yes (Hospitalization, Other)
  Sender: FDA-Public Use
  Company Number: AEUSA200800179

PATIENT
  Age: 89 Year
  Sex: Female
  Weight: 40.8237 kg

DRUGS (1)
  1. GAMASTAN IMMUNE GLOBULIN  (HUMAN) [Suspect]
     Indication: EXPOSURE TO COMMUNICABLE DISEASE
     Dosage: 0.8 ML;1X;IM
     Route: 030
     Dates: start: 20080709, end: 20080709

REACTIONS (7)
  - CHRONIC OBSTRUCTIVE PULMONARY DISEASE [None]
  - CONDITION AGGRAVATED [None]
  - LOWER RESPIRATORY TRACT INFECTION [None]
  - PLEURAL EFFUSION [None]
  - PULMONARY OEDEMA [None]
  - RESPIRATORY DISORDER [None]
  - WHITE BLOOD CELL COUNT INCREASED [None]
